FAERS Safety Report 8281335-1 (Version None)
Quarter: 2012Q2

REPORT INFORMATION
  Report Type: 
  Country: None (occurrence: None)
  Receive Date: 20120413
  Receipt Date: 20120410
  Transmission Date: 20120825
  Serious: Yes (Hospitalization, Other)
  Sender: FDA-Public Use
  Company Number: US-PFIZER INC-2012045406

PATIENT
  Sex: Female

DRUGS (2)
  1. SUTENT [Suspect]
     Dosage: 37.5 MG (12.5 MG PLUS 25 MG), 1X/DAY
     Route: 048
     Dates: start: 20111003, end: 20120111
  2. SUTENT [Suspect]
     Indication: RENAL CANCER
     Dosage: 50 MG, 1X/DAY
     Route: 048
     Dates: start: 20110901

REACTIONS (6)
  - MUCOSAL INFLAMMATION [None]
  - DIARRHOEA [None]
  - THROMBOCYTOPENIA [None]
  - DISEASE PROGRESSION [None]
  - RENAL CANCER [None]
  - RASH [None]
